FAERS Safety Report 11448519 (Version 3)
Quarter: 2016Q1

REPORT INFORMATION
  Report Type: Spontaneous
  Country: US (occurrence: US)
  Receive Date: 20150902
  Receipt Date: 20160315
  Transmission Date: 20160525
  Serious: Yes (Hospitalization, Other)
  Sender: FDA-Public Use
  Company Number: US-GLAXOSMITHKLINE-US2015124793

PATIENT
  Age: 46 Year
  Sex: Male
  Weight: 122 kg

DRUGS (12)
  1. CALCIUM [Concomitant]
     Active Substance: CALCIUM
  2. PHENOBARBITAL. [Concomitant]
     Active Substance: PHENOBARBITAL
  3. LISIPRIL (LISINOPRIL) [Concomitant]
  4. DILANTIN [Concomitant]
     Active Substance: PHENYTOIN
  5. LAMICTAL XR [Suspect]
     Active Substance: LAMOTRIGINE
     Indication: COMPLEX PARTIAL SEIZURES
     Dosage: 400 MG, BID
     Route: 048
     Dates: end: 2009
  6. LAMICTAL XR [Suspect]
     Active Substance: LAMOTRIGINE
     Indication: EPILEPSY
     Dosage: 100 MG, 6D
     Route: 048
     Dates: start: 2009
  7. LASIX [Concomitant]
     Active Substance: FUROSEMIDE
  8. VALIUM [Concomitant]
     Active Substance: DIAZEPAM
  9. LAMICTAL [Suspect]
     Active Substance: LAMOTRIGINE
     Indication: EPILEPSY
     Dosage: UNK
     Route: 048
     Dates: start: 2004, end: 2009
  10. DILANTIN [Suspect]
     Active Substance: PHENYTOIN
     Indication: COMPLEX PARTIAL SEIZURES
     Dosage: 130 MG, QID
     Dates: start: 19671019
  11. COREG [Concomitant]
     Active Substance: CARVEDILOL
  12. ZOCOR [Concomitant]
     Active Substance: SIMVASTATIN

REACTIONS (8)
  - Adverse drug reaction [Unknown]
  - Aura [Unknown]
  - Drug ineffective [Unknown]
  - Heart valve replacement [Recovered/Resolved]
  - Intentional product misuse [Unknown]
  - Rash [Not Recovered/Not Resolved]
  - Cardiac valve rupture [Unknown]
  - Product substitution issue [Unknown]

NARRATIVE: CASE EVENT DATE: 20090921
